FAERS Safety Report 20126042 (Version 1)
Quarter: 2021Q4

REPORT INFORMATION
  Report Type: Spontaneous
  Country: US (occurrence: None)
  Receive Date: 20211127
  Receipt Date: 20211127
  Transmission Date: 20220303
  Serious: Yes (Other)
  Sender: FDA-Public Use
  Company Number: None

PATIENT
  Age: 48 Year
  Sex: Female
  Weight: 99 kg

DRUGS (1)
  1. SECRET OUTLAST COMPLETELY CLEAN DRY [Suspect]
     Active Substance: ALUMINUM CHLOROHYDRATE
     Indication: Personal hygiene
     Dosage: OTHER QUANTITY : 1 SPRAY(S);?OTHER FREQUENCY : EVERY OTHER DAY;?
     Route: 061
     Dates: start: 20160101, end: 20211127

REACTIONS (3)
  - Osteogenesis imperfecta [None]
  - Upper limb fracture [None]
  - Upper limb fracture [None]

NARRATIVE: CASE EVENT DATE: 20201222
